FAERS Safety Report 8572425-4 (Version None)
Quarter: 2012Q3

REPORT INFORMATION
  Report Type: 
  Country: None (occurrence: None)
  Receive Date: 20120806
  Receipt Date: 20120723
  Transmission Date: 20120928
  Serious: Yes (Other)
  Sender: FDA-Public Use
  Company Number: FR-VERTEX PHARMACEUTICALS INC.-000000000000001290

PATIENT
  Sex: Male
  Weight: 57.5 kg

DRUGS (5)
  1. RIBAVIRIN [Suspect]
     Indication: HEPATITIS C
     Dosage: DOSAGE FORM: INJECTION, 2 DOSES IN THE MORNING AND 3 DOSES IN THE EVENING
     Route: 048
     Dates: start: 20120417
  2. PLACEBO [Concomitant]
     Indication: HEPATITIS C
     Route: 048
     Dates: start: 20120417
  3. VX-950 [Suspect]
     Indication: HEPATITIS C
     Dosage: DOSAGE FORM: TABLET
     Route: 048
     Dates: start: 20120417
  4. PEGINTERFERON ALFA-2A [Suspect]
     Indication: HEPATITIS C
     Dosage: DOSAGE FORM: INJECTION
     Route: 058
     Dates: start: 20120417
  5. BEPANTHENE [Concomitant]
     Route: 054
     Dates: start: 20120509

REACTIONS (1)
  - NEUTROPHIL COUNT DECREASED [None]
